FAERS Safety Report 5410485-X (Version None)
Quarter: 2007Q3

REPORT INFORMATION
  Report Type: 
  Country: None (occurrence: None)
  Receive Date: 20070810
  Receipt Date: 20070112
  Transmission Date: 20080115
  Serious: No
  Sender: FDA-Public Use
  Company Number: A0635533A

PATIENT
  Age: 23 Year
  Sex: Female

DRUGS (2)
  1. PAROXETINE [Suspect]
     Indication: DEPRESSION
     Dosage: 20MG SEE DOSAGE TEXT
     Route: 048
  2. NO CONCURRENT MEDICATION [Concomitant]

REACTIONS (7)
  - DRUG EXPOSURE DURING PREGNANCY [None]
  - DRUG WITHDRAWAL SYNDROME [None]
  - EATING DISORDER [None]
  - HEADACHE [None]
  - NAUSEA [None]
  - TENSION HEADACHE [None]
  - VOMITING [None]
